FAERS Safety Report 4796734-X (Version None)
Quarter: 2005Q4

REPORT INFORMATION
  Report Type: 
  Country: None (occurrence: None)
  Receive Date: 20051013
  Receipt Date: 20051010
  Transmission Date: 20060501
  Serious: Yes (Hospitalization)
  Sender: FDA-Public Use
  Company Number: 200518981GDDC

PATIENT
  Age: 11 Year
  Sex: Male

DRUGS (1)
  1. MINIRIN [Suspect]
     Indication: ENURESIS
     Dosage: DOSE: 1 TABLET
     Route: 048
     Dates: start: 20030901, end: 20041002

REACTIONS (1)
  - TINNITUS [None]
